FAERS Safety Report 13620922 (Version 1)
Quarter: 2017Q2

REPORT INFORMATION
  Report Type: Spontaneous
  Country: DE (occurrence: DE)
  Receive Date: 20170607
  Receipt Date: 20170607
  Transmission Date: 20170830
  Serious: Yes (Life-Threatening, Hospitalization)
  Sender: FDA-Public Use
  Company Number: DE-DRREDDYS-GER/GER/17/0091155

PATIENT
  Age: 30 Year
  Sex: Female
  Weight: 55 kg

DRUGS (6)
  1. THIOPENTAL [Concomitant]
     Active Substance: THIOPENTAL
     Indication: STUPOR
  2. CIPROFLOXACIN. [Suspect]
     Active Substance: CIPROFLOXACIN
     Indication: SINUSITIS
     Route: 048
     Dates: start: 20170418, end: 20170422
  3. REMIFENTANIL [Concomitant]
     Active Substance: REMIFENTANIL
     Indication: STUPOR
  4. AMOXICILLIN. [Concomitant]
     Active Substance: AMOXICILLIN
     Indication: ANTIBIOTIC PROPHYLAXIS
     Dates: start: 20170324, end: 20170330
  5. DESMIN [Concomitant]
     Active Substance: DESOGESTREL\ETHINYL ESTRADIOL
     Indication: CONTRACEPTION
     Route: 048
     Dates: start: 2005
  6. FENTANYL. [Concomitant]
     Active Substance: FENTANYL
     Indication: STUPOR

REACTIONS (2)
  - Benign hepatic neoplasm [Unknown]
  - Drug-induced liver injury [Not Recovered/Not Resolved]

NARRATIVE: CASE EVENT DATE: 20170422
